FAERS Safety Report 8082887-7 (Version None)
Quarter: 2012Q1

REPORT INFORMATION
  Report Type: 
  Country: None (occurrence: None)
  Receive Date: 20120127
  Receipt Date: 20110125
  Transmission Date: 20120608
  Serious: No
  Sender: FDA-Public Use
  Company Number: US-ABBOTT-11P-163-0700558-00

PATIENT
  Age: 21 Year
  Sex: Male

DRUGS (3)
  1. IRON [Concomitant]
     Indication: MINERAL SUPPLEMENTATION
     Dosage: DAILY
  2. ROWASA [Concomitant]
     Indication: CROHN'S DISEASE
  3. HUMIRA [Suspect]
     Indication: CROHN'S DISEASE
     Dates: start: 20101101

REACTIONS (1)
  - INJECTION SITE PAIN [None]
